FAERS Safety Report 13855245 (Version 2)
Quarter: 2017Q3

REPORT INFORMATION
  Report Type: Spontaneous
  Country: CH (occurrence: CH)
  Receive Date: 20170810
  Receipt Date: 20170905
  Transmission Date: 20171127
  Serious: Yes (Other)
  Sender: FDA-Public Use
  Company Number: CH-PFIZER INC-2017339861

PATIENT
  Age: 22 Year
  Sex: Male

DRUGS (4)
  1. SANDIMMUN [Suspect]
     Active Substance: CYCLOSPORINE
     Dosage: 200 MG, 2X/DAY
     Route: 048
  2. ATGAM [Suspect]
     Active Substance: EQUINE THYMOCYTE IMMUNE GLOBULIN
     Indication: APLASTIC ANAEMIA
     Dosage: 3450MG 1X/DAY
     Route: 042
     Dates: start: 20170623, end: 20170626
  3. SOLU-MEDROL [Suspect]
     Active Substance: METHYLPREDNISOLONE SODIUM SUCCINATE
     Indication: APLASTIC ANAEMIA
     Dosage: 125MG (BETWEEN 125 MG 1X / D TO 3X / D)
     Route: 042
     Dates: start: 20170623, end: 20170626
  4. SANDIMMUN [Suspect]
     Active Substance: CYCLOSPORINE
     Indication: APLASTIC ANAEMIA
     Dosage: 175 UNK, 1X/DAY
     Route: 048
     Dates: start: 20170623

REACTIONS (5)
  - Myalgia [Not Recovered/Not Resolved]
  - Pyrexia [Recovered/Resolved]
  - Arthralgia [Not Recovered/Not Resolved]
  - Abscess limb [Not Recovered/Not Resolved]
  - Escherichia bacteraemia [Unknown]

NARRATIVE: CASE EVENT DATE: 2017
